FAERS Safety Report 16140552 (Version 3)
Quarter: 2019Q2

REPORT INFORMATION
  Report Type: Report from Study
  Country: PL (occurrence: PL)
  Receive Date: 20190401
  Receipt Date: 20190517
  Transmission Date: 20190711
  Serious: Yes (Hospitalization, Other)
  Sender: FDA-Public Use
  Company Number: PL-BAYER-2019-058316

PATIENT
  Age: 31 Year
  Sex: Female

DRUGS (2)
  1. BETAFERON [Suspect]
     Active Substance: INTERFERON BETA-1B
     Indication: MULTIPLE SCLEROSIS
     Dosage: 250 MG/ML
     Route: 058
     Dates: start: 2005
  2. BETAFERON [Suspect]
     Active Substance: INTERFERON BETA-1B
     Indication: MULTIPLE SCLEROSIS
     Dosage: UNK
     Dates: start: 20060607

REACTIONS (9)
  - Autoimmune dermatitis [Recovered/Resolved]
  - Paraparesis [None]
  - Injection site oedema [Recovered/Resolved]
  - Injection site induration [Recovered/Resolved]
  - Connective tissue inflammation [Recovered/Resolved]
  - Injection site erythema [Recovered/Resolved]
  - Multiple sclerosis relapse [None]
  - Injection site erythema [None]
  - Injection site extravasation [Recovered/Resolved]

NARRATIVE: CASE EVENT DATE: 20190307
